FAERS Safety Report 9509629 (Version 1)
Quarter: 2013Q3

REPORT INFORMATION
  Report Type: Spontaneous
  Country: US (occurrence: US)
  Receive Date: 20130909
  Receipt Date: 20130909
  Transmission Date: 20140515
  Serious: No
  Sender: FDA-Public Use
  Company Number: US-BRISTOL-MYERS SQUIBB COMPANY-18910745

PATIENT
  Age: 9 Year
  Sex: Male

DRUGS (5)
  1. ABILIFY [Suspect]
     Dosage: HALF IN THE MORNING AND HALF AT NIGHT
  2. PROZAC [Concomitant]
  3. FOCALIN [Concomitant]
  4. MELATONIN [Concomitant]
  5. IMPROMEN [Concomitant]

REACTIONS (4)
  - Muscle twitching [Unknown]
  - Dyskinesia [Unknown]
  - Dysphemia [Unknown]
  - Wrong technique in drug usage process [Unknown]
